FAERS Safety Report 7934542-9 (Version None)
Quarter: 2011Q4

REPORT INFORMATION
  Report Type: 
  Country: None (occurrence: None)
  Receive Date: 20111122
  Receipt Date: 20111115
  Transmission Date: 20120403
  Serious: Yes (Other)
  Sender: FDA-Public Use
  Company Number: US-ABBOTT-11P-163-0874677-00

PATIENT
  Sex: Female
  Weight: 78.996 kg

DRUGS (5)
  1. DIOVAN [Concomitant]
     Indication: HYPERTENSION
  2. KLOR-CON [Concomitant]
     Indication: BLOOD POTASSIUM DECREASED
  3. ALKA SELTZER [Concomitant]
     Indication: PROPHYLAXIS
  4. ALKA SELTZER [Concomitant]
     Indication: FLUSHING
  5. NIASPAN [Suspect]
     Indication: PRODUCT USED FOR UNKNOWN INDICATION
     Dosage: 1500MG DAILY, 500MG 3 IN 1 DAY
     Dates: start: 20100101

REACTIONS (1)
  - CARPAL TUNNEL DECOMPRESSION [None]
